FAERS Safety Report 7880873-0 (Version None)
Quarter: 2011Q4

REPORT INFORMATION
  Report Type: 
  Country: None (occurrence: None)
  Receive Date: 20111101
  Receipt Date: 20111017
  Transmission Date: 20120403
  Serious: Yes (Death)
  Sender: FDA-Public Use
  Company Number: CH-WATSON-2011-17629

PATIENT
  Age: 78 Year
  Sex: Male

DRUGS (2)
  1. PREDNISONE [Suspect]
     Indication: LYMPHOMA
     Dosage: 2.5 MG, DAILY
     Route: 065
  2. PREDNISONE [Suspect]
     Dosage: 5 MG, DAILY
     Route: 065

REACTIONS (3)
  - BRAIN ABSCESS [None]
  - EYE ABSCESS [None]
  - NOCARDIOSIS [None]
